FAERS Safety Report 8142364-1 (Version None)
Quarter: 2012Q1

REPORT INFORMATION
  Report Type: 
  Country: None (occurrence: None)
  Receive Date: 20120216
  Receipt Date: 20120207
  Transmission Date: 20120608
  Serious: Yes (Hospitalization, Other)
  Sender: FDA-Public Use
  Company Number: PHHY2012DE005223

PATIENT
  Sex: Female

DRUGS (5)
  1. MULTI-VITAMINS [Concomitant]
  2. TOBI [Suspect]
     Indication: PSEUDOMONAS INFECTION
     Dosage: 4 DF, BID
     Dates: start: 20111130, end: 20120115
  3. URSO FALK [Concomitant]
     Indication: CYSTIC FIBROSIS
     Dosage: 400 MG, QD
  4. AZITHROMYCIN [Concomitant]
     Indication: CYSTIC FIBROSIS
     Dosage: 500 MG, THRICE PER WEEK
  5. URSO FALK [Concomitant]
     Indication: LIVER DISORDER

REACTIONS (1)
  - HAEMOPTYSIS [None]
